FAERS Safety Report 18789439 (Version 1)
Quarter: 2021Q1

REPORT INFORMATION
  Report Type: Spontaneous
  Country: FR (occurrence: FR)
  Receive Date: 20210126
  Receipt Date: 20210126
  Transmission Date: 20210419
  Serious: Yes (Other)
  Sender: FDA-Public Use
  Company Number: FR-MYLANLABS-2021M1004057

PATIENT
  Age: 69 Year
  Sex: Male
  Weight: 74 kg

DRUGS (2)
  1. DECTANCYL [Suspect]
     Active Substance: DEXAMETHASONE
     Indication: CORONAVIRUS INFECTION
     Dosage: 6 MILLIGRAM, QD
     Route: 048
     Dates: start: 20201120, end: 20201124
  2. DEXAMETHASONE MYLAN [Suspect]
     Active Substance: DEXAMETHASONE
     Indication: CORONAVIRUS INFECTION
     Dosage: 6 MILLIGRAM, QD
     Route: 042
     Dates: start: 20201118, end: 20201119

REACTIONS (2)
  - Diabetic metabolic decompensation [Recovered/Resolved]
  - Off label use [Unknown]

NARRATIVE: CASE EVENT DATE: 20201118
